FAERS Safety Report 10389633 (Version 1)
Quarter: 2014Q3

REPORT INFORMATION
  Report Type: Spontaneous
  Country: US (occurrence: None)
  Receive Date: 20140813
  Receipt Date: 20140813
  Transmission Date: 20150326
  Serious: Yes (Hospitalization)
  Sender: FDA-Public Use
  Company Number: AUR-APL-2014-08515

PATIENT
  Age: 23 Year
  Sex: Male

DRUGS (9)
  1. ZIPRASIDONE [Suspect]
     Active Substance: ZIPRASIDONE
     Indication: SCHIZOAFFECTIVE DISORDER
     Route: 048
  2. LITHIUM [Suspect]
     Active Substance: LITHIUM CARBONATE
     Indication: SCHIZOAFFECTIVE DISORDER
     Dosage: 900MG, DAILY ON OUTPATIENT FOLLOW UP, ORAL
     Route: 048
  3. HALOPERIDOL. [Suspect]
     Active Substance: HALOPERIDOL
     Indication: SCHIZOAFFECTIVE DISORDER
     Route: 048
  4. CLONAZEPAM (CLONAZEPAM) [Concomitant]
  5. QUETIAPINE [Suspect]
     Active Substance: QUETIAPINE
     Indication: SCHIZOAFFECTIVE DISORDER
     Route: 048
  6. BENZATROPINE [Concomitant]
     Active Substance: BENZTROPINE
  7. VALPROIC ACID (VALPROIC ACID) [Concomitant]
     Active Substance: VALPROIC ACID
  8. PALIPERIDONE [Suspect]
     Active Substance: PALIPERIDONE
     Indication: SCHIZOAFFECTIVE DISORDER
     Route: 048
  9. OLANZAPINE (OLANZAPINE) [Concomitant]
     Active Substance: OLANZAPINE

REACTIONS (8)
  - Tachypnoea [None]
  - Rhabdomyolysis [None]
  - Back pain [None]
  - Dyspnoea [None]
  - Alanine aminotransferase increased [None]
  - Pain [None]
  - Aspartate aminotransferase increased [None]
  - Abdominal pain [None]
